FAERS Safety Report 8007974-0 (Version None)
Quarter: 2011Q4

REPORT INFORMATION
  Report Type: 
  Country: None (occurrence: None)
  Receive Date: 20111227
  Receipt Date: 20111212
  Transmission Date: 20120403
  Serious: Yes (Hospitalization, Other)
  Sender: FDA-Public Use
  Company Number: PHHY2010AU49439

PATIENT
  Sex: Male

DRUGS (1)
  1. CLOZARIL [Suspect]
     Indication: SCHIZOPHRENIA
     Dosage: 500 MG, UNK
     Route: 048
     Dates: start: 20100304, end: 20110819

REACTIONS (18)
  - MENTAL DISORDER [None]
  - CORONARY ARTERY DISEASE [None]
  - BUNDLE BRANCH BLOCK LEFT [None]
  - LYMPHOCYTE COUNT INCREASED [None]
  - CELLULITIS [None]
  - LEFT VENTRICULAR DYSFUNCTION [None]
  - CONDUCTION DISORDER [None]
  - AGGRESSION [None]
  - COMPARTMENT SYNDROME [None]
  - MUSCLE NECROSIS [None]
  - ARTERIOSCLEROSIS CORONARY ARTERY [None]
  - PLATELET COUNT INCREASED [None]
  - POST PROCEDURAL COMPLICATION [None]
  - BLOOD CREATINE PHOSPHOKINASE INCREASED [None]
  - PERONEAL NERVE PALSY [None]
  - BLOOD UREA DECREASED [None]
  - WHITE BLOOD CELL COUNT INCREASED [None]
  - MYOSITIS [None]
